FAERS Safety Report 24549580 (Version 2)
Quarter: 2024Q4

REPORT INFORMATION
  Report Type: Spontaneous
  Country: US (occurrence: US)
  Receive Date: 20241025
  Receipt Date: 20241224
  Transmission Date: 20250114
  Serious: No
  Sender: KALEO, INC.
  Company Number: US-Kaleo, Inc.-2024KL000049

PATIENT
  Age: 64 Year
  Sex: Male

DRUGS (1)
  1. AUVI-Q [Suspect]
     Active Substance: EPINEPHRINE

REACTIONS (1)
  - No device malfunction [Not Recovered/Not Resolved]
